FAERS Safety Report 22058954 (Version 1)
Quarter: 2023Q1

REPORT INFORMATION
  Report Type: Spontaneous
  Country: SA (occurrence: SA)
  Receive Date: 20230303
  Receipt Date: 20230303
  Transmission Date: 20230418
  Serious: Yes (Hospitalization)
  Sender: FDA-Public Use
  Company Number: SA-Sudair Pharmaceutical Company-202300006

PATIENT
  Age: 70 Year
  Sex: Male

DRUGS (4)
  1. CAPECITABINE [Suspect]
     Active Substance: CAPECITABINE
     Indication: Rectal cancer
     Dosage: CAPECITABINE 1000 MG/M2 ORALLY TWICE DAILY ON DAYS 1-14 THEN 7 DAYS OFF. THEN START THE SECOND CYCLE
     Route: 048
     Dates: start: 20221221
  2. CAPECITABINE [Suspect]
     Active Substance: CAPECITABINE
     Dosage: CAPECITABINE 1000 MG/M2 ORALLY TWICE DAILY ON DAYS 1-14 THEN 7 DAYS OFF. THEN START THE SECOND CYCLE
     Route: 048
     Dates: start: 20230111, end: 20230125
  3. OXALIPLATIN [Concomitant]
     Active Substance: OXALIPLATIN
     Indication: Rectal cancer
     Dosage: OXALIPLATIN 130 MG/M2 INTRAVENOUSLY ON DAY 1
     Route: 042
     Dates: start: 20221221
  4. OXALIPLATIN [Concomitant]
     Active Substance: OXALIPLATIN
     Dosage: OXALIPLATIN 130 MG/M2 INTRAVENOUSLY ON DAY 1
     Route: 042
     Dates: start: 20230111

REACTIONS (9)
  - Electrolyte depletion [Recovered/Resolved]
  - Diarrhoea [Recovered/Resolved]
  - Abdominal discomfort [Recovered/Resolved]
  - Neuropathy peripheral [Recovered/Resolved]
  - Oedema peripheral [Recovered/Resolved]
  - Decreased appetite [Recovered/Resolved]
  - Fatigue [Recovered/Resolved]
  - Palmar-plantar erythrodysaesthesia syndrome [Recovered/Resolved]
  - Stomatitis [Recovered/Resolved]

NARRATIVE: CASE EVENT DATE: 20230201
